FAERS Safety Report 20766342 (Version 1)
Quarter: 2022Q2

REPORT INFORMATION
  Report Type: Report from Study
  Country: BR (occurrence: BR)
  Receive Date: 20220428
  Receipt Date: 20220428
  Transmission Date: 20220720
  Serious: Yes (Other)
  Sender: FDA-Public Use
  Company Number: BR-UCBSA-2022023221

PATIENT
  Sex: Female
  Weight: 84 kg

DRUGS (3)
  1. CERTOLIZUMAB PEGOL [Suspect]
     Active Substance: CERTOLIZUMAB PEGOL
     Indication: Rheumatoid arthritis
     Dosage: 400 MILLIGRAM, EV 4 WEEKS
     Route: 058
  2. CERTOLIZUMAB PEGOL [Suspect]
     Active Substance: CERTOLIZUMAB PEGOL
     Indication: Crohn^s disease
  3. IODINE [Concomitant]
     Active Substance: IODINE
     Indication: Metastasis
     Dosage: UNK

REACTIONS (6)
  - Thyroid cancer [Recovering/Resolving]
  - Hernia repair [Not Recovered/Not Resolved]
  - Metastases to central nervous system [Recovering/Resolving]
  - Internal haemorrhage [Unknown]
  - Necrosis [Unknown]
  - Injection site vesicles [Recovered/Resolved]

NARRATIVE: CASE EVENT DATE: 20170101
